FAERS Safety Report 6366373-8 (Version None)
Quarter: 2009Q3

REPORT INFORMATION
  Report Type: 
  Country: None (occurrence: None)
  Receive Date: 20090915
  Receipt Date: 20090901
  Transmission Date: 20100115
  Serious: Yes (Other)
  Sender: FDA-Public Use
  Company Number: 1-19727427

PATIENT
  Sex: Female

DRUGS (2)
  1. FENTANYL [Suspect]
  2. BUPRENORPHINE HCL [Suspect]

REACTIONS (4)
  - CIRCULATORY COLLAPSE [None]
  - DIZZINESS [None]
  - DRUG WITHDRAWAL SYNDROME [None]
  - HYPERHIDROSIS [None]
